FAERS Safety Report 17991024 (Version 1)
Quarter: 2020Q3

REPORT INFORMATION
  Report Type: Spontaneous
  Country: US (occurrence: US)
  Receive Date: 20200707
  Receipt Date: 20200707
  Transmission Date: 20201103
  Serious: Yes (Other)
  Sender: FDA-Public Use
  Company Number: US-ASTRAZENECA-2020SE82712

PATIENT
  Age: 85 Year
  Sex: Female

DRUGS (2)
  1. RISPERIDONE. [Suspect]
     Active Substance: RISPERIDONE
     Indication: PRODUCT USED FOR UNKNOWN INDICATION
     Dosage: 0.25
     Route: 065
  2. SEROQUEL [Suspect]
     Active Substance: QUETIAPINE FUMARATE
     Indication: PRODUCT USED FOR UNKNOWN INDICATION
     Route: 048

REACTIONS (15)
  - Memory impairment [Unknown]
  - Dizziness [Not Recovered/Not Resolved]
  - Underdose [Unknown]
  - Glomerular filtration rate decreased [Unknown]
  - Hallucination, auditory [Unknown]
  - Hyperthyroidism [Unknown]
  - Fall [Unknown]
  - Hypertension [Unknown]
  - Nonspecific reaction [Unknown]
  - Depression [Unknown]
  - Cognitive disorder [Unknown]
  - Psychotic disorder [Unknown]
  - Adjustment disorder with mixed anxiety and depressed mood [Unknown]
  - Major depression [Unknown]
  - Adjustment disorder with anxiety [Unknown]
